FAERS Safety Report 8244034-8 (Version None)
Quarter: 2012Q1

REPORT INFORMATION
  Report Type: 
  Country: None (occurrence: None)
  Receive Date: 20120309
  Receipt Date: 20101117
  Transmission Date: 20120608
  Serious: Yes (Other)
  Sender: FDA-Public Use
  Company Number: PHHY2010US53568

PATIENT
  Age: 33 Year
  Sex: Female

DRUGS (4)
  1. ANTIBOTICS [Concomitant]
  2. IBUPROFEN [Concomitant]
  3. VITAMIN B12 [Concomitant]
  4. EXTAVIA [Suspect]
     Indication: MULTIPLE SCLEROSIS
     Dosage: 0.187 MG, QOD, SUBCUTANEOUS
     Route: 058
     Dates: start: 20100616

REACTIONS (11)
  - TREATMENT NONCOMPLIANCE [None]
  - MUSCULAR WEAKNESS [None]
  - MALAISE [None]
  - PARAESTHESIA [None]
  - INJECTION SITE ERYTHEMA [None]
  - MULTIPLE SCLEROSIS RELAPSE [None]
  - INJECTION SITE HAEMATOMA [None]
  - FEELING ABNORMAL [None]
  - BACK PAIN [None]
  - BRONCHITIS [None]
  - VISION BLURRED [None]
